FAERS Safety Report 17802930 (Version 1)
Quarter: 2020Q2

REPORT INFORMATION
  Report Type: Spontaneous
  Country: US (occurrence: US)
  Receive Date: 20200519
  Receipt Date: 20200519
  Transmission Date: 20200714
  Serious: Yes (Other)
  Sender: FDA-Public Use
  Company Number: US-TEVA-2020-US-1236240

PATIENT

DRUGS (4)
  1. PROVIGIL [Suspect]
     Active Substance: MODAFINIL
     Indication: COGNITIVE DISORDER
  2. PROVIGIL [Suspect]
     Active Substance: MODAFINIL
     Indication: SOMNOLENCE
     Route: 065
  3. PROVIGIL [Suspect]
     Active Substance: MODAFINIL
     Indication: SEDATION
  4. PROVIGIL [Suspect]
     Active Substance: MODAFINIL
     Indication: FATIGUE

REACTIONS (6)
  - Therapy interrupted [Unknown]
  - Asthenia [Unknown]
  - Malaise [Unknown]
  - Drug dependence [Unknown]
  - Product use in unapproved indication [Unknown]
  - Gait disturbance [Unknown]
